FAERS Safety Report 5563371-9 (Version None)
Quarter: 2007Q4

REPORT INFORMATION
  Report Type: 
  Country: None (occurrence: None)
  Receive Date: 20071217
  Receipt Date: 20071012
  Transmission Date: 20080405
  Serious: No
  Sender: FDA-Public Use
  Company Number: US-ASTRAZENECA-2004UW11021

PATIENT
  Age: 61 Year
  Sex: Female
  Weight: 65.8 kg

DRUGS (18)
  1. CRESTOR [Suspect]
     Indication: BLOOD CHOLESTEROL INCREASED
     Route: 048
     Dates: start: 20040507, end: 20040526
  2. CRESTOR [Suspect]
     Indication: BLOOD TRIGLYCERIDES INCREASED
     Route: 048
     Dates: start: 20040507, end: 20040526
  3. CRESTOR [Suspect]
     Route: 048
     Dates: start: 20040601, end: 20040726
  4. CRESTOR [Suspect]
     Route: 048
     Dates: start: 20040601, end: 20040726
  5. CRESTOR [Suspect]
     Route: 048
     Dates: start: 20040727
  6. CRESTOR [Suspect]
     Route: 048
     Dates: start: 20040727
  7. CRESTOR [Suspect]
     Route: 048
  8. CRESTOR [Suspect]
     Route: 048
  9. CRESTOR [Suspect]
     Route: 048
  10. CRESTOR [Suspect]
     Route: 048
  11. CRESTOR [Suspect]
     Route: 048
     Dates: start: 20070901
  12. CRESTOR [Suspect]
     Route: 048
     Dates: start: 20070901
  13. VIOXX [Concomitant]
  14. SYNTHROID [Concomitant]
  15. ASPIRIN [Concomitant]
  16. WELLBUTRIN [Concomitant]
  17. KETOPROFEN [Concomitant]
  18. CENTRUM SILVER [Concomitant]

REACTIONS (9)
  - ASTHENIA [None]
  - BURNING SENSATION [None]
  - CONSTIPATION [None]
  - HEADACHE [None]
  - MYALGIA [None]
  - PAIN [None]
  - PAIN OF SKIN [None]
  - PARAESTHESIA [None]
  - VISION BLURRED [None]
